FAERS Safety Report 9194347 (Version 2)
Quarter: 2013Q1

REPORT INFORMATION
  Report Type: Spontaneous
  Country: US (occurrence: US)
  Receive Date: 20130327
  Receipt Date: 20130328
  Transmission Date: 20140127
  Serious: Yes (Hospitalization, Other)
  Sender: FDA-Public Use
  Company Number: US-RB-051318-13

PATIENT
  Age: 46 Year
  Sex: Male

DRUGS (4)
  1. MUCINEX DM MAXIMUM STRENGTH [Suspect]
     Indication: COUGH
     Dosage: TOOK 1 TABLET ON 11-MAR-2013 AT 2 PM, 1 TABLET AT 8:30/9 AM ON 12-MAR-2013
     Route: 048
     Dates: start: 20130311
  2. LISINOPRIL [Concomitant]
     Indication: HYPERTENSION
     Dosage: TAKES REGULARLY
  3. IBUPROFEN [Concomitant]
     Indication: PAIN
  4. IBUPROFEN [Concomitant]
     Indication: MYALGIA

REACTIONS (6)
  - Syncope [Unknown]
  - Heart rate increased [Unknown]
  - Tremor [Unknown]
  - Cough [Unknown]
  - Vertigo [Unknown]
  - Blood pressure decreased [Unknown]
